FAERS Safety Report 8936671 (Version 2)
Quarter: 2013Q1

REPORT INFORMATION
  Report Type: Spontaneous
  Country: FR (occurrence: FR)
  Receive Date: 20121130
  Receipt Date: 20130110
  Transmission Date: 20140127
  Serious: Yes (Hospitalization)
  Sender: FDA-Public Use
  Company Number: FR-009507513-1211FRA009615

PATIENT
  Age: 51 Year
  Sex: Male
  Weight: 77 kg

DRUGS (7)
  1. STROMECTOL [Suspect]
     Indication: PROPHYLAXIS
     Dosage: 15 MG, ONCE
     Route: 048
     Dates: start: 20121101, end: 20121101
  2. STROMECTOL [Suspect]
     Dosage: 15 MG, ONCE
     Route: 048
     Dates: start: 20121112, end: 20121112
  3. SEROPLEX [Concomitant]
     Dosage: 20 MG, QD
     Route: 048
  4. ALPRAZOLAM [Concomitant]
     Dosage: 0.75 MG, QD
  5. OMEXEL [Concomitant]
     Dosage: 1 DF, QD
     Route: 048
  6. STILNOX [Concomitant]
     Dosage: UNK, PRN
     Route: 048
  7. APRANAX (NAPROXEN SODIUM) [Concomitant]
     Dosage: UNK
     Dates: start: 201208

REACTIONS (1)
  - Pulmonary embolism [Recovered/Resolved]
